FAERS Safety Report 5603757-7 (Version None)
Quarter: 2008Q1

REPORT INFORMATION
  Report Type: 
  Country: None (occurrence: None)
  Receive Date: 20080128
  Receipt Date: 20080118
  Transmission Date: 20080703
  Serious: Yes (Other)
  Sender: FDA-Public Use
  Company Number: US-BAYER-200713132BCC

PATIENT
  Age: 40 Year
  Sex: Female
  Weight: 56 kg

DRUGS (1)
  1. ASPIRIN [Suspect]
     Indication: DRUG USE FOR UNKNOWN INDICATION
     Route: 048
     Dates: start: 19890101

REACTIONS (10)
  - DRUG HYPERSENSITIVITY [None]
  - EAR HAEMORRHAGE [None]
  - EPISTAXIS [None]
  - EYE HAEMORRHAGE [None]
  - MOUTH HAEMORRHAGE [None]
  - RECTAL HAEMORRHAGE [None]
  - SKIN HAEMORRHAGE [None]
  - TRAUMATIC HAEMORRHAGE [None]
  - URETHRAL HAEMORRHAGE [None]
  - VAGINAL HAEMORRHAGE [None]
